FAERS Safety Report 7151841-1 (Version None)
Quarter: 2010Q4

REPORT INFORMATION
  Report Type: 
  Country: None (occurrence: None)
  Receive Date: 20101210
  Receipt Date: 20101125
  Transmission Date: 20110411
  Serious: Yes (Hospitalization)
  Sender: FDA-Public Use
  Company Number: GB-AMGEN-GBRSP2010007254

PATIENT

DRUGS (1)
  1. ENBREL [Suspect]
     Indication: PRODUCT USED FOR UNKNOWN INDICATION
     Dosage: 25 MG, 2X/WEEK

REACTIONS (7)
  - ABDOMINAL DISCOMFORT [None]
  - ERYTHEMA [None]
  - PALPITATIONS [None]
  - PRODUCT QUALITY ISSUE [None]
  - PRURITUS [None]
  - RASH MACULAR [None]
  - TRANSMISSION OF AN INFECTIOUS AGENT VIA A MEDICINAL PRODUCT [None]
